FAERS Safety Report 7513233-2 (Version None)
Quarter: 2011Q2

REPORT INFORMATION
  Report Type: 
  Country: None (occurrence: None)
  Receive Date: 20110531
  Receipt Date: 20110502
  Transmission Date: 20111010
  Serious: Yes (Other)
  Sender: FDA-Public Use
  Company Number: US-BAYER-2011-007733

PATIENT
  Age: 46 Year
  Sex: Female
  Weight: 71.655 kg

DRUGS (1)
  1. YASMIN [Suspect]
     Indication: CONTRACEPTION
     Dosage: UNK
     Route: 048
     Dates: start: 20060301, end: 20080901

REACTIONS (9)
  - CHOLECYSTITIS CHRONIC [None]
  - DEPRESSION [None]
  - PAIN [None]
  - FEAR [None]
  - CHOLELITHIASIS [None]
  - GALLBLADDER DISORDER [None]
  - ANXIETY [None]
  - CHOLECYSTITIS [None]
  - BILE DUCT STONE [None]
